FAERS Safety Report 9932336 (Version 1)
Quarter: 2014Q1

REPORT INFORMATION
  Report Type: Spontaneous
  Country: US (occurrence: US)
  Receive Date: 20140228
  Receipt Date: 20140228
  Transmission Date: 20141002
  Serious: No
  Sender: FDA-Public Use
  Company Number: US-ABBVIE-14P-163-1196767-00

PATIENT
  Sex: Female

DRUGS (2)
  1. ANDROGEL [Suspect]
     Indication: FEMALE ORGASMIC DISORDER
     Dosage: 2.5 GRAM PACKET,1 PACKET ON MONDAY, WEDNESDAY, FRIDAY
     Route: 061
  2. ANDROGEL [Suspect]
     Dosage: 1 PACKET ON MONDAY AND FRIDAY
     Route: 061

REACTIONS (3)
  - Female orgasmic disorder [Not Recovered/Not Resolved]
  - Off label use [Unknown]
  - Drug administered at inappropriate site [Unknown]
